FAERS Safety Report 20818069 (Version 1)
Quarter: 2022Q2

REPORT INFORMATION
  Report Type: Spontaneous
  Country: US (occurrence: US)
  Receive Date: 20220512
  Receipt Date: 20220512
  Transmission Date: 20220721
  Serious: No
  Sender: FDA-Public Use
  Company Number: US-PFIZER INC-202101369792

PATIENT
  Age: 15 Year
  Sex: Female

DRUGS (2)
  1. TESTOSTERONE [Suspect]
     Active Substance: TESTOSTERONE
     Dosage: UNK
     Route: 058
  2. TESTOSTERONE [Suspect]
     Active Substance: TESTOSTERONE
     Dosage: UNK
     Route: 030

REACTIONS (2)
  - Rash [Unknown]
  - Off label use [Unknown]
